FAERS Safety Report 22371110 (Version 13)
Quarter: 2025Q2

REPORT INFORMATION
  Report Type: Report from Study
  Country: US (occurrence: US)
  Receive Date: 20230526
  Receipt Date: 20250407
  Transmission Date: 20250717
  Serious: Yes (Hospitalization, Other)
  Sender: NOVARTIS
  Company Number: US-002147023-NVSC2023US120727

PATIENT
  Sex: Female

DRUGS (1)
  1. KESIMPTA [Suspect]
     Active Substance: OFATUMUMAB
     Indication: Relapsing multiple sclerosis
     Route: 065
     Dates: start: 20230522

REACTIONS (21)
  - Vomiting [Unknown]
  - Asthenia [Unknown]
  - Abdominal pain [Unknown]
  - Multiple sclerosis relapse [Unknown]
  - Muscular weakness [Unknown]
  - Temperature intolerance [Not Recovered/Not Resolved]
  - Chills [Unknown]
  - Headache [Unknown]
  - Fatigue [Unknown]
  - Upper respiratory tract infection [Unknown]
  - Productive cough [Unknown]
  - Vitamin B12 decreased [Unknown]
  - Dizziness [Unknown]
  - Hyperhidrosis [Unknown]
  - Feeling hot [Unknown]
  - Mammogram abnormal [Unknown]
  - Pain in extremity [Unknown]
  - Carpal tunnel syndrome [Unknown]
  - Arthritis [Unknown]
  - Arthralgia [Unknown]
  - Hypertension [Unknown]
